FAERS Safety Report 4789701-3 (Version None)
Quarter: 2005Q4

REPORT INFORMATION
  Report Type: 
  Country: None (occurrence: None)
  Receive Date: 20051006
  Receipt Date: 20050719
  Transmission Date: 20060501
  Serious: Yes (Death)
  Sender: FDA-Public Use
  Company Number: FR-BRACCO-BRO-008932

PATIENT
  Sex: Male
  Weight: 95 kg

DRUGS (4)
  1. IOPAMIRON [Suspect]
     Route: 042
     Dates: start: 20050703, end: 20050703
  2. INSULATARD                         /00030504/ [Concomitant]
     Route: 050
  3. SORIATANE [Concomitant]
     Route: 050
  4. ELISOR [Concomitant]
     Route: 050

REACTIONS (8)
  - ANAPHYLACTIC SHOCK [None]
  - CARDIO-RESPIRATORY ARREST [None]
  - CYANOSIS [None]
  - FACE OEDEMA [None]
  - LARYNGEAL OEDEMA [None]
  - SLEEP APNOEA SYNDROME [None]
  - TRANSIENT ISCHAEMIC ATTACK [None]
  - URINARY INCONTINENCE [None]
